FAERS Safety Report 4287278-2 (Version None)
Quarter: 2004Q1

REPORT INFORMATION
  Report Type: 
  Country: None (occurrence: None)
  Receive Date: 20040126
  Receipt Date: 20030923
  Transmission Date: 20041129
  Serious: No
  Sender: FDA-Public Use
  Company Number: USA030741167

PATIENT
  Age: 79 Year
  Sex: Female
  Weight: 49 kg

DRUGS (5)
  1. FORTEO [Suspect]
     Indication: FRACTURE
     Dosage: 20 UG/DAY
     Dates: start: 20030701
  2. FORTEO [Suspect]
     Indication: OSTEOPOROSIS
     Dosage: 20 UG/DAY
     Dates: start: 20030701
  3. PREDNISONE [Concomitant]
  4. AMBIEN [Concomitant]
  5. LIPITOR [Concomitant]

REACTIONS (2)
  - DIZZINESS [None]
  - INJECTION SITE ERYTHEMA [None]
